FAERS Safety Report 24696865 (Version 1)
Quarter: 2024Q4

REPORT INFORMATION
  Report Type: Spontaneous
  Country: US (occurrence: US)
  Receive Date: 20241204
  Receipt Date: 20241204
  Transmission Date: 20250115
  Serious: No
  Sender: BAYER HEALTHCARE LLC
  Company Number: US-BAYER-2024A172119

PATIENT
  Age: 73 Year
  Sex: Male

DRUGS (2)
  1. MIRALAX [Suspect]
     Active Substance: POLYETHYLENE GLYCOL 3350
     Dosage: 238 GRAMS OF LIQUID, DOSE
     Route: 048
     Dates: start: 20241205
  2. BISACODYL [Suspect]
     Active Substance: BISACODYL
     Indication: Colonoscopy
     Dosage: 45 GRAMS

REACTIONS (2)
  - Product prescribing issue [Unknown]
  - Extra dose administered [None]

NARRATIVE: CASE EVENT DATE: 20241205
